FAERS Safety Report 7669082-8 (Version None)
Quarter: 2011Q3

REPORT INFORMATION
  Report Type: 
  Country: None (occurrence: None)
  Receive Date: 20110808
  Receipt Date: 20110805
  Transmission Date: 20111222
  Serious: Yes (Hospitalization)
  Sender: FDA-Public Use
  Company Number: DE-ABBOTT-11P-062-0731405-00

PATIENT
  Sex: Female
  Weight: 49 kg

DRUGS (2)
  1. HUMIRA [Suspect]
     Indication: FISTULA REPAIR
     Dosage: 80 MG LOADING DOSE
     Route: 058
     Dates: start: 20091026, end: 20091026
  2. HUMIRA [Suspect]
     Route: 058

REACTIONS (1)
  - FEMALE GENITAL TRACT FISTULA [None]
